FAERS Safety Report 12294935 (Version 1)
Quarter: 2016Q2

REPORT INFORMATION
  Report Type: Spontaneous
  Country: US (occurrence: None)
  Receive Date: 20160421
  Receipt Date: 20160421
  Transmission Date: 20160815
  Serious: No
  Sender: FDA-Public Use
  Company Number: None

PATIENT
  Age: 64 Year
  Sex: Female
  Weight: 77 kg

DRUGS (8)
  1. PROPOFOL. [Concomitant]
     Active Substance: PROPOFOL
  2. PIV [Concomitant]
  3. EZ 6.0 NASAL RAE ETT [Concomitant]
  4. SEVOFLURANE. [Suspect]
     Active Substance: SEVOFLURANE
     Dosage: 1.4% ET CONTINUOUS INHALATIONAL
     Route: 055
     Dates: start: 20160331
  5. ONDANSETRON [Concomitant]
     Active Substance: ONDANSETRON
  6. IVF NS [Concomitant]
  7. FACE MASK [Concomitant]
  8. ETCO2 [Concomitant]

REACTIONS (8)
  - Thirst [None]
  - Oxygen saturation decreased [None]
  - Cardiac output decreased [None]
  - Electrocardiogram abnormal [None]
  - Ventricular extrasystoles [None]
  - Bradycardia [None]
  - Supraventricular extrasystoles [None]
  - PCO2 decreased [None]

NARRATIVE: CASE EVENT DATE: 20160331
